FAERS Safety Report 17816975 (Version 2)
Quarter: 2020Q2

REPORT INFORMATION
  Report Type: Spontaneous
  Country: BR (occurrence: BR)
  Receive Date: 20200522
  Receipt Date: 20200612
  Transmission Date: 20200714
  Serious: Yes (Death)
  Sender: FDA-Public Use
  Company Number: BR-ROCHE-2604726

PATIENT
  Age: 73 Year
  Sex: Male

DRUGS (10)
  1. AMIODARONE [Concomitant]
     Active Substance: AMIODARONE
  2. ACTEMRA [Suspect]
     Active Substance: TOCILIZUMAB
     Indication: INTERLEUKIN LEVEL INCREASED
     Dosage: TWO DOSAGES
     Route: 065
  3. AZITHROMYCIN ANHYDROUS. [Concomitant]
     Active Substance: AZITHROMYCIN ANHYDROUS
  4. CODEINE [Concomitant]
     Active Substance: CODEINE
  5. PARACETAMOL [Concomitant]
     Active Substance: ACETAMINOPHEN
  6. ENOXAPARIN [Concomitant]
     Active Substance: ENOXAPARIN
  7. CEFTRIAXONE. [Concomitant]
     Active Substance: CEFTRIAXONE
  8. TAZOBACTAM [Concomitant]
     Active Substance: TAZOBACTAM
  9. MICAFUNGIN. [Concomitant]
     Active Substance: MICAFUNGIN SODIUM
  10. PIPERACILLIN. [Concomitant]
     Active Substance: PIPERACILLIN SODIUM

REACTIONS (11)
  - Off label use [Unknown]
  - Respiratory gas exchange disorder [Fatal]
  - Haemodynamic instability [Fatal]
  - Distributive shock [Fatal]
  - Aspartate aminotransferase increased [Fatal]
  - Septic shock [Fatal]
  - Intentional product use issue [Unknown]
  - Acute kidney injury [Fatal]
  - Alanine aminotransferase increased [Fatal]
  - Gamma-glutamyltransferase increased [Fatal]
  - Blood alkaline phosphatase increased [Fatal]
